FAERS Safety Report 7968646-1 (Version None)
Quarter: 2011Q4

REPORT INFORMATION
  Report Type: 
  Country: None (occurrence: None)
  Receive Date: 20111207
  Receipt Date: 20111125
  Transmission Date: 20120403
  Serious: Yes (Life-Threatening, Other)
  Sender: FDA-Public Use
  Company Number: JP-2011-11767

PATIENT
  Age: 64 Year
  Sex: Female
  Weight: 47 kg

DRUGS (8)
  1. CRESTOR [Concomitant]
  2. OMEPRAZOLE [Concomitant]
  3. CELECOXIB [Concomitant]
  4. METGLUCO (METFORMIN HYDROCHLORIDE) [Concomitant]
  5. IRBETAN (IRBESARTAN) [Concomitant]
  6. PLETAL [Suspect]
     Indication: ARTERIOSCLEROSIS OBLITERANS
     Dosage: 100 MG MILLIGRAM(S), BID, ORAL
     Route: 048
     Dates: start: 20110927, end: 20111020
  7. PLETAL [Suspect]
     Indication: ARTERIOSCLEROSIS OBLITERANS
     Dosage: 100 MG MILLIGRAM(S), BID, ORAL
     Route: 048
     Dates: start: 20111116
  8. CONIEL (BENIDIPINE HYDROCHLORIDE) [Concomitant]

REACTIONS (5)
  - MALAISE [None]
  - MITRAL VALVE INCOMPETENCE [None]
  - LEFT VENTRICLE OUTFLOW TRACT OBSTRUCTION [None]
  - CHEST DISCOMFORT [None]
  - PALPITATIONS [None]
